FAERS Safety Report 18751493 (Version 1)
Quarter: 2021Q1

REPORT INFORMATION
  Report Type: Spontaneous
  Country: CA (occurrence: CA)
  Receive Date: 20210118
  Receipt Date: 20210118
  Transmission Date: 20210419
  Serious: Yes (Other)
  Sender: FDA-Public Use
  Company Number: CA-ACCORD-214206

PATIENT
  Age: 34 Year
  Sex: Female

DRUGS (5)
  1. CARBOPLATIN. [Suspect]
     Active Substance: CARBOPLATIN
     Indication: BORDERLINE SEROUS TUMOUR OF OVARY
     Route: 042
  2. PROCYTOX [Suspect]
     Active Substance: CYCLOPHOSPHAMIDE
     Indication: BORDERLINE SEROUS TUMOUR OF OVARY
  3. CISPLATIN. [Suspect]
     Active Substance: CISPLATIN
     Indication: BORDERLINE SEROUS TUMOUR OF OVARY
  4. DOXORUBICIN [Suspect]
     Active Substance: DOXORUBICIN
     Indication: BORDERLINE SEROUS TUMOUR OF OVARY
  5. PACLITAXEL/PACLITAXEL LIPOSOME [Suspect]
     Active Substance: PACLITAXEL
     Indication: BORDERLINE SEROUS TUMOUR OF OVARY
     Route: 042

REACTIONS (4)
  - Gastrointestinal toxicity [Recovered/Resolved]
  - Bladder perforation [Recovered/Resolved]
  - Hydronephrosis [Recovered/Resolved]
  - Neoplasm progression [Recovered/Resolved]
